FAERS Safety Report 17942523 (Version 1)
Quarter: 2020Q2

REPORT INFORMATION
  Report Type: Spontaneous
  Country: FR (occurrence: FR)
  Receive Date: 20200624
  Receipt Date: 20200624
  Transmission Date: 20200714
  Serious: Yes (Other)
  Sender: FDA-Public Use
  Company Number: FR-TAKEDA-2020TUS027601

PATIENT
  Age: 14 Year
  Sex: Female

DRUGS (6)
  1. ICLUSIG [Suspect]
     Active Substance: PONATINIB
     Indication: TYROSINE KINASE MUTATION
  2. DAUNORUBICIN [Concomitant]
     Active Substance: DAUNORUBICIN
     Indication: ACUTE MYELOID LEUKAEMIA
     Dosage: 60 MILLIGRAM/SQ. METER
     Route: 065
  3. BUSULFAN. [Concomitant]
     Active Substance: BUSULFAN
     Indication: BONE MARROW CONDITIONING REGIMEN
     Dosage: UNK
     Route: 065
  4. CLOFARABINE. [Concomitant]
     Active Substance: CLOFARABINE
     Indication: ACUTE MYELOID LEUKAEMIA
     Dosage: 40 MILLIGRAM/SQ. METER
     Route: 065
  5. ICLUSIG [Suspect]
     Active Substance: PONATINIB
     Indication: ACUTE MYELOID LEUKAEMIA REFRACTORY
     Dosage: 45 MILLIGRAM, QD
     Route: 065
  6. CYCLOPHOSPHAMIDE. [Concomitant]
     Active Substance: CYCLOPHOSPHAMIDE
     Indication: BONE MARROW CONDITIONING REGIMEN
     Dosage: UNK
     Route: 065

REACTIONS (2)
  - Product administered to patient of inappropriate age [Unknown]
  - Off label use [Unknown]
